FAERS Safety Report 7866502-0 (Version None)
Quarter: 2011Q4

REPORT INFORMATION
  Report Type: 
  Country: None (occurrence: None)
  Receive Date: 20111028
  Receipt Date: 20110627
  Transmission Date: 20120403
  Serious: No
  Sender: FDA-Public Use
  Company Number: US-GLAXOSMITHKLINE-A0933254A

PATIENT
  Age: 77 Year
  Sex: Female

DRUGS (8)
  1. CALCIUM SUPPLEMENT [Concomitant]
  2. LEVOTHYROXINE SODIUM [Concomitant]
  3. VITAMIN D [Concomitant]
  4. FLUTICASONE PROPIONATE [Concomitant]
  5. SIMVASTATIN [Concomitant]
  6. LOVAZA [Concomitant]
  7. MELATONIN [Concomitant]
  8. ADVAIR DISKUS 100/50 [Suspect]
     Indication: ASTHMA
     Dosage: 1PUFF AS REQUIRED
     Route: 055
     Dates: start: 20080101

REACTIONS (4)
  - INCREASED UPPER AIRWAY SECRETION [None]
  - PRODUCT QUALITY ISSUE [None]
  - COUGH [None]
  - DRUG INEFFECTIVE [None]
